FAERS Safety Report 9475170 (Version 1)
Quarter: 2013Q3

REPORT INFORMATION
  Report Type: Spontaneous
  Country: US (occurrence: US)
  Receive Date: 20130824
  Receipt Date: 20130824
  Transmission Date: 20140515
  Serious: Yes (Other)
  Sender: FDA-Public Use
  Company Number: PHHY2013US089239

PATIENT
  Age: 61 Year
  Sex: Female

DRUGS (5)
  1. METOPROLOL [Suspect]
     Route: 048
  2. HYDROCHLOROTHIAZIDE [Suspect]
     Route: 048
  3. CLONIDINE [Suspect]
     Dosage: UNK UKN, UNK
     Route: 048
  4. CLONIDINE [Suspect]
     Dosage: UNK UKN, UNK
     Route: 062
  5. AMLODIPINE BESYLATE [Suspect]
     Route: 048

REACTIONS (5)
  - Angioedema [Unknown]
  - Urticaria chronic [Unknown]
  - Pruritus [Unknown]
  - Skin disorder [Unknown]
  - Nasal polyps [Unknown]
